FAERS Safety Report 7769346-3 (Version None)
Quarter: 2011Q3

REPORT INFORMATION
  Report Type: 
  Country: None (occurrence: None)
  Receive Date: 20110922
  Receipt Date: 20110920
  Transmission Date: 20111222
  Serious: Yes (Hospitalization)
  Sender: FDA-Public Use
  Company Number: NL-PFIZER INC-2006107589

PATIENT
  Age: 84 Year
  Sex: Female

DRUGS (9)
  1. RISEDRONATE SODIUM [Concomitant]
     Route: 048
     Dates: start: 20010101
  2. METOPROLOL TARTRATE [Concomitant]
     Route: 048
     Dates: start: 20060301
  3. SUNITINIB MALATE [Suspect]
     Indication: METASTATIC RENAL CELL CARCINOMA
     Dosage: UNK
     Route: 048
     Dates: start: 20060803, end: 20060817
  4. ACETYLCYSTEINE [Concomitant]
     Route: 048
     Dates: start: 20060301, end: 20060818
  5. GABAPENTIN [Concomitant]
     Route: 048
     Dates: start: 20020101
  6. FUROSEMIDE [Concomitant]
     Route: 048
     Dates: start: 20060301, end: 20060818
  7. OXAZEPAM [Concomitant]
     Route: 048
     Dates: start: 19910101, end: 20060818
  8. OXYCONTIN [Concomitant]
     Route: 048
     Dates: start: 20060814, end: 20060818
  9. PANTOPRAZOLE [Concomitant]
     Route: 048
     Dates: start: 20060301

REACTIONS (3)
  - COGNITIVE DISORDER [None]
  - GAIT DISTURBANCE [None]
  - TRIGEMINAL NEURALGIA [None]
